FAERS Safety Report 11603671 (Version 1)
Quarter: 2015Q4

REPORT INFORMATION
  Report Type: Spontaneous
  Country: US (occurrence: None)
  Receive Date: 20151006
  Receipt Date: 20151006
  Transmission Date: 20160304
  Serious: Yes (Other)
  Sender: FDA-Public Use
  Company Number: None

PATIENT
  Age: 25 Year
  Sex: Female
  Weight: 78.9 kg

DRUGS (1)
  1. RITUXAN [Suspect]
     Active Substance: RITUXIMAB
     Indication: MULTIPLE SCLEROSIS
     Dosage: 500ML IN 250ML NS 0.9% Q 6 MONTHS
     Route: 042
     Dates: start: 20151001, end: 20151001

REACTIONS (12)
  - Asthenia [None]
  - Feeling abnormal [None]
  - Dyspnoea [None]
  - Tachycardia [None]
  - Hypoaesthesia [None]
  - Fatigue [None]
  - Nausea [None]
  - Decreased appetite [None]
  - Discomfort [None]
  - Oral pruritus [None]
  - Infusion related reaction [None]
  - Dizziness exertional [None]

NARRATIVE: CASE EVENT DATE: 20151001
